FAERS Safety Report 12545933 (Version 2)
Quarter: 2017Q3

REPORT INFORMATION
  Report Type: Spontaneous
  Country: US (occurrence: US)
  Receive Date: 20160711
  Receipt Date: 20170707
  Transmission Date: 20171127
  Serious: No
  Sender: FDA-Public Use
  Company Number: US-JNJFOC-20150918140

PATIENT
  Age: 43 Year
  Sex: Male

DRUGS (3)
  1. INVEGA [Suspect]
     Active Substance: PALIPERIDONE
     Indication: SCHIZOPHRENIA
     Dosage: 6MG, 9MG, 12MG
     Route: 048
     Dates: start: 20071221, end: 20100304
  2. INVEGA [Suspect]
     Active Substance: PALIPERIDONE
     Indication: SCHIZOPHRENIA
     Route: 048
  3. RISPERDAL [Suspect]
     Active Substance: RISPERIDONE
     Indication: SCHIZOPHRENIA
     Route: 048
     Dates: end: 200712

REACTIONS (4)
  - Gynaecomastia [Unknown]
  - Hyperglycaemia [Unknown]
  - Abnormal weight gain [Unknown]
  - Akathisia [Unknown]

NARRATIVE: CASE EVENT DATE: 2006
